FAERS Safety Report 11101458 (Version 4)
Quarter: 2015Q3

REPORT INFORMATION
  Report Type: Report from Study
  Country: US (occurrence: US)
  Receive Date: 20150508
  Receipt Date: 20150716
  Transmission Date: 20151125
  Serious: Yes (Hospitalization)
  Sender: FDA-Public Use
  Company Number: US-ABBVIE-15P-163-1366424-00

PATIENT
  Age: 32 Year
  Sex: Male

DRUGS (4)
  1. HUMIRA [Suspect]
     Active Substance: ADALIMUMAB
     Route: 065
     Dates: start: 20150506
  2. PREDNISONE. [Concomitant]
     Active Substance: PREDNISONE
     Indication: PRODUCT USED FOR UNKNOWN INDICATION
     Route: 048
  3. HUMIRA [Suspect]
     Active Substance: ADALIMUMAB
     Indication: CROHN^S DISEASE
     Route: 065
     Dates: start: 20150212, end: 20150406
  4. PENTASA [Concomitant]
     Active Substance: MESALAMINE
     Indication: PRODUCT USED FOR UNKNOWN INDICATION

REACTIONS (13)
  - Small intestinal obstruction [Unknown]
  - Coccidioidomycosis [Unknown]
  - Dyspnoea [Unknown]
  - Drug effect incomplete [Not Recovered/Not Resolved]
  - Chills [Unknown]
  - Lymphadenopathy [Unknown]
  - Influenza [Unknown]
  - Ascites [Unknown]
  - Mass [Unknown]
  - Cough [Unknown]
  - Pyrexia [Unknown]
  - Upper respiratory tract infection [Recovering/Resolving]
  - Headache [Unknown]

NARRATIVE: CASE EVENT DATE: 2015
